FAERS Safety Report 5618543-1 (Version None)
Quarter: 2008Q1

REPORT INFORMATION
  Report Type: 
  Country: None (occurrence: None)
  Receive Date: 20080207
  Receipt Date: 20080130
  Transmission Date: 20080703
  Serious: Yes (Other)
  Sender: FDA-Public Use
  Company Number: BR-ASTRAZENECA-2008UW01364

PATIENT
  Age: 76 Year
  Sex: Female
  Weight: 59 kg

DRUGS (7)
  1. ARIMIDEX [Suspect]
     Indication: BREAST CANCER FEMALE
     Route: 048
     Dates: start: 20051101
  2. SYNTHROID [Concomitant]
     Indication: HYPOTHYROIDISM
     Route: 048
     Dates: start: 19980101
  3. METFORMIN HCL [Concomitant]
     Indication: DIABETES MELLITUS
     Route: 048
     Dates: start: 19930101
  4. GINKGO BILOBA [Concomitant]
     Indication: PROPHYLAXIS
     Route: 048
     Dates: start: 19920101
  5. ACTONEL [Concomitant]
     Indication: OSTEOPOROSIS PROPHYLAXIS
     Route: 048
     Dates: start: 20060101
  6. CALCIUM GLUCONATE [Concomitant]
     Indication: OSTEOPOROSIS PROPHYLAXIS
     Route: 048
     Dates: start: 20060101
  7. ASPIRIN [Concomitant]
     Route: 048

REACTIONS (5)
  - ENDOMETRIAL HYPERTROPHY [None]
  - HAIR GROWTH ABNORMAL [None]
  - RESORPTION BONE INCREASED [None]
  - THROMBOSIS [None]
  - WEIGHT INCREASED [None]
